FAERS Safety Report 9676125 (Version 2)
Quarter: 2013Q4

REPORT INFORMATION
  Report Type: Spontaneous
  Country: US (occurrence: US)
  Receive Date: 20131107
  Receipt Date: 20131218
  Transmission Date: 20140711
  Serious: Yes (Hospitalization, Other)
  Sender: FDA-Public Use
  Company Number: US-UCBSA-102297

PATIENT
  Age: 66 Year
  Sex: Female
  Weight: 53 kg

DRUGS (6)
  1. CIMZIA [Suspect]
     Indication: RHEUMATOID ARTHRITIS
     Dates: start: 20110815, end: 20131030
  2. TOPRAMAX [Concomitant]
     Indication: HEADACHE
     Route: 048
  3. DAYPRO [Concomitant]
     Indication: RHEUMATOID ARTHRITIS
     Route: 048
  4. FOLIC ACID [Concomitant]
     Indication: SUPPLEMENTATION THERAPY
     Route: 048
  5. METHYTREXATE [Concomitant]
     Indication: RHEUMATOID ARTHRITIS
     Dosage: 1 CC
     Route: 042
  6. NORCO [Concomitant]
     Indication: PAIN
     Dosage: 5/325 MG

REACTIONS (5)
  - Dyspnoea [Recovering/Resolving]
  - Cough [Recovering/Resolving]
  - Pulmonary thrombosis [Recovering/Resolving]
  - Arthritis [Recovered/Resolved]
  - Asthenia [Unknown]
